FAERS Safety Report 22634105 (Version 1)
Quarter: 2023Q2

REPORT INFORMATION
  Report Type: Report from Study
  Country: US (occurrence: US)
  Receive Date: 20230623
  Receipt Date: 20230623
  Transmission Date: 20230721
  Serious: Yes (Other)
  Sender: FDA-Public Use
  Company Number: US-CIPLA LTD.-2023US03481

PATIENT

DRUGS (3)
  1. AZACITIDINE [Suspect]
     Active Substance: AZACITIDINE
     Indication: Product used for unknown indication
     Dosage: 75 MILLIGRAM/SQ. METER, UNK
     Route: 065
  2. OLUTASIDENIB [Suspect]
     Active Substance: OLUTASIDENIB
     Indication: Product used for unknown indication
     Dosage: 150 MILLIGRAM, UNK
     Route: 048
  3. OLUTASIDENIB [Suspect]
     Active Substance: OLUTASIDENIB
     Dosage: 150 MILLIGRAM, BID (TWICE DAILY)
     Route: 048

REACTIONS (1)
  - Liver function test abnormal [Recovered/Resolved]
